FAERS Safety Report 4443041-0 (Version None)
Quarter: 2004Q3

REPORT INFORMATION
  Report Type: 
  Country: None (occurrence: None)
  Receive Date: 20040903
  Receipt Date: 20040629
  Transmission Date: 20050211
  Serious: Yes (Other)
  Sender: FDA-Public Use
  Company Number: 2004UW13472

PATIENT
  Sex: Female
  Weight: 63.5036 kg

DRUGS (3)
  1. CRESTOR [Suspect]
     Indication: HYPERCHOLESTEROLAEMIA
     Dosage: 10 MG PO
     Route: 048
     Dates: start: 20040101
  2. SYNTHROID [Concomitant]
  3. DIURETICS [Concomitant]

REACTIONS (2)
  - ALOPECIA [None]
  - PRURITUS [None]
